FAERS Safety Report 4852470-2 (Version None)
Quarter: 2005Q4

REPORT INFORMATION
  Report Type: 
  Country: None (occurrence: None)
  Receive Date: 20051213
  Receipt Date: 20051201
  Transmission Date: 20060501
  Serious: Yes (Other)
  Sender: FDA-Public Use
  Company Number: SE-BRISTOL-MYERS SQUIBB COMPANY-13209432

PATIENT
  Age: 52 Year
  Sex: Male

DRUGS (1)
  1. DOVONEX [Suspect]

REACTIONS (1)
  - OSTEOPOROSIS [None]
